FAERS Safety Report 16321047 (Version 3)
Quarter: 2020Q2

REPORT INFORMATION
  Report Type: Report from Study
  Country: CA (occurrence: CA)
  Receive Date: 20190516
  Receipt Date: 20200501
  Transmission Date: 20200713
  Serious: No
  Sender: FDA-Public Use
  Company Number: CA-ROCHE-2318931

PATIENT
  Age: 24 Year
  Sex: Male

DRUGS (2)
  1. AMITRIPTYLINE [Concomitant]
     Active Substance: AMITRIPTYLINE
  2. OCREVUS [Suspect]
     Active Substance: OCRELIZUMAB
     Indication: RELAPSING-REMITTING MULTIPLE SCLEROSIS
     Dosage: 300 MG AT DAY 0 AND 14, THEN 600 MG EVERY 6 MONTH
     Route: 042
     Dates: start: 20190410

REACTIONS (4)
  - Hypoaesthesia [Unknown]
  - Onychomycosis [Unknown]
  - Infusion related reaction [Unknown]
  - Headache [Unknown]

NARRATIVE: CASE EVENT DATE: 20200321
